FAERS Safety Report 13533604 (Version 2)
Quarter: 2017Q2

REPORT INFORMATION
  Report Type: Spontaneous
  Country: AR (occurrence: AR)
  Receive Date: 20170510
  Receipt Date: 20170518
  Transmission Date: 20170830
  Serious: Yes (Hospitalization)
  Sender: FDA-Public Use
  Company Number: AR-PFIZER INC-2017202908

PATIENT
  Age: 62 Year
  Sex: Female

DRUGS (1)
  1. IBRANCE [Suspect]
     Active Substance: PALBOCICLIB
     Indication: BREAST CANCER METASTATIC
     Dosage: 125 MG, CYCLIC (SCHEME 3/1)
     Dates: start: 20170307, end: 20170429

REACTIONS (6)
  - Cough [Recovering/Resolving]
  - Pleural effusion [Recovering/Resolving]
  - Confusional state [Unknown]
  - Asthenia [Recovering/Resolving]
  - Underweight [Recovering/Resolving]
  - Dyspnoea [Recovering/Resolving]

NARRATIVE: CASE EVENT DATE: 201704
